FAERS Safety Report 7433905-8 (Version None)
Quarter: 2011Q2

REPORT INFORMATION
  Report Type: 
  Country: None (occurrence: None)
  Receive Date: 20110418
  Receipt Date: 20110401
  Transmission Date: 20111010
  Serious: Yes (Life-Threatening, Hospitalization)
  Sender: FDA-Public Use
  Company Number: AUR-APL-2010-02441

PATIENT
  Age: 60 Year
  Sex: Female
  Weight: 115 kg

DRUGS (4)
  1. CIPROFLOXACIN [Suspect]
     Dosage: 500MG, BID, ORAL
     Route: 048
     Dates: start: 20100721, end: 20100727
  2. METHOTREXATE [Suspect]
     Indication: POLYARTHRITIS
     Dosage: 15 MG, ORAL
     Route: 048
  3. METFORMIN HCL [Suspect]
     Indication: METABOLIC SYNDROME
     Dosage: 2.5 MG, ORAL
     Route: 048
  4. METRONIDAZOLE [Suspect]
     Dosage: 50 MG, BID, ORAL
     Route: 048
     Dates: start: 20100721, end: 20100727

REACTIONS (3)
  - ALVEOLITIS ALLERGIC [None]
  - DEVICE RELATED SEPSIS [None]
  - DIVERTICULITIS [None]
